FAERS Safety Report 19477238 (Version 2)
Quarter: 2023Q1

REPORT INFORMATION
  Report Type: Spontaneous
  Country: US (occurrence: US)
  Receive Date: 20210630
  Receipt Date: 20230110
  Transmission Date: 20230418
  Serious: Yes (Hospitalization, Other)
  Sender: FDA-Public Use
  Company Number: US-SA-2021SA209692

PATIENT
  Age: 55 Year
  Sex: Female

DRUGS (2)
  1. DUPIXENT [Suspect]
     Active Substance: DUPILUMAB
     Indication: Dermatitis
     Dosage: UNK
  2. DUPIXENT [Suspect]
     Active Substance: DUPILUMAB
     Indication: Pemphigoid

REACTIONS (12)
  - Eosinophilic pneumonia [Recovering/Resolving]
  - Eosinophilia [Recovered/Resolved]
  - Chills [Recovering/Resolving]
  - Cough [Recovering/Resolving]
  - Dyspnoea [Recovering/Resolving]
  - Pain [Recovering/Resolving]
  - Pyrexia [Recovering/Resolving]
  - Lung opacity [Recovering/Resolving]
  - Chest pain [Recovering/Resolving]
  - Night sweats [Recovering/Resolving]
  - Hypoxia [Recovering/Resolving]
  - Off label use [Recovered/Resolved]
